FAERS Safety Report 8009269-8 (Version None)
Quarter: 2011Q4

REPORT INFORMATION
  Report Type: 
  Country: None (occurrence: None)
  Receive Date: 20111227
  Receipt Date: 20111215
  Transmission Date: 20120403
  Serious: Yes (Other)
  Sender: FDA-Public Use
  Company Number: US-ASTRAZENECA-2011SE58907

PATIENT
  Age: 71 Year
  Sex: Female

DRUGS (6)
  1. SEROQUEL XR [Suspect]
     Indication: SLEEP DISORDER
     Route: 048
  2. SYNTHROID [Concomitant]
     Indication: THYROID DISORDER
  3. SIMCASCATIM [Concomitant]
     Indication: BLOOD CHOLESTEROL ABNORMAL
  4. LOPID [Concomitant]
     Indication: BLOOD CHOLESTEROL ABNORMAL
  5. METOPROLOL SUCCINATE [Concomitant]
     Indication: BLOOD PRESSURE ABNORMAL
  6. FUROSEMIDE [Concomitant]
     Indication: CARDIAC DISORDER

REACTIONS (5)
  - HIP FRACTURE [None]
  - FALL [None]
  - DRUG PRESCRIBING ERROR [None]
  - DRUG EFFECT DECREASED [None]
  - WRONG TECHNIQUE IN DRUG USAGE PROCESS [None]
